FAERS Safety Report 24254141 (Version 2)
Quarter: 2025Q4

REPORT INFORMATION
  Report Type: Spontaneous
  Country: JP (occurrence: JP)
  Receive Date: 20240827
  Receipt Date: 20251009
  Transmission Date: 20260117
  Serious: Yes (Other)
  Sender: ALEXION PHARMACEUTICALS
  Company Number: 2024A190737

PATIENT
  Age: 74 Year
  Sex: Male

DRUGS (2)
  1. TAGRISSO [Suspect]
     Active Substance: OSIMERTINIB
     Indication: Non-small cell lung cancer
     Dosage: 80 MILLIGRAM, QD
  2. TAGRISSO [Suspect]
     Active Substance: OSIMERTINIB
     Dosage: 40 MILLIGRAM, QD

REACTIONS (5)
  - Interstitial lung disease [Unknown]
  - Non-small cell lung cancer recurrent [Unknown]
  - Renal disorder [Unknown]
  - Metastases to bone [Unknown]
  - Off label use [Unknown]
